FAERS Safety Report 17366784 (Version 2)
Quarter: 2020Q1

REPORT INFORMATION
  Report Type: Report from Study
  Country: US (occurrence: US)
  Receive Date: 20200204
  Receipt Date: 20200227
  Transmission Date: 20200409
  Serious: Yes (Other)
  Sender: FDA-Public Use
  Company Number: NVSC2020US024985

PATIENT
  Sex: Female

DRUGS (1)
  1. MAYZENT [Suspect]
     Active Substance: SIPONIMOD
     Indication: MULTIPLE SCLEROSIS
     Dosage: 2 MG, QD
     Route: 048
     Dates: start: 20191101

REACTIONS (7)
  - Peripheral swelling [Unknown]
  - Malaise [Unknown]
  - Multiple sclerosis relapse [Unknown]
  - Progressive multiple sclerosis [Unknown]
  - Urinary tract infection [Unknown]
  - Muscle spasticity [Unknown]
  - Joint swelling [Unknown]
